FAERS Safety Report 9656716 (Version 1)
Quarter: 2013Q4

REPORT INFORMATION
  Report Type: Spontaneous
  Country: RU (occurrence: RU)
  Receive Date: 20131030
  Receipt Date: 20131030
  Transmission Date: 20140711
  Serious: Yes (Other)
  Sender: FDA-Public Use
  Company Number: RU-BAYER-2013-131529

PATIENT
  Age: 35 Year
  Sex: Female

DRUGS (1)
  1. YARINA [Suspect]
     Dosage: UNK
     Route: 048
     Dates: start: 2012

REACTIONS (4)
  - Pyelonephritis [None]
  - Metrorrhagia [None]
  - Asthenia [None]
  - Dizziness [None]
